FAERS Safety Report 11947812 (Version 2)
Quarter: 2016Q1

REPORT INFORMATION
  Report Type: Spontaneous
  Country: US (occurrence: US)
  Receive Date: 20160125
  Receipt Date: 20160204
  Transmission Date: 20160526
  Serious: Yes (Hospitalization)
  Sender: FDA-Public Use
  Company Number: US-GUERBET LLC-1046885

PATIENT
  Age: 43 Year
  Sex: Female
  Weight: 56.7 kg

DRUGS (3)
  1. BENADRYL [Concomitant]
     Active Substance: DIPHENHYDRAMINE HYDROCHLORIDE
  2. DOTAREM [Suspect]
     Active Substance: GADOTERATE MEGLUMINE
     Indication: NUCLEAR MAGNETIC RESONANCE IMAGING BRAIN
     Route: 040
     Dates: start: 20151231, end: 20151231
  3. PREDNISONE. [Concomitant]
     Active Substance: PREDNISONE

REACTIONS (10)
  - Dysphagia [Recovered/Resolved]
  - Abnormal behaviour [Recovered/Resolved]
  - Hypertension [Recovered/Resolved]
  - Refusal of treatment by patient [None]
  - Oxygen saturation decreased [Recovered/Resolved]
  - Heart rate increased [Recovered/Resolved]
  - Condition aggravated [None]
  - Throat tightness [Recovered/Resolved]
  - Contraindicated drug administered [Recovered/Resolved]
  - Unevaluable event [None]

NARRATIVE: CASE EVENT DATE: 20151231
